FAERS Safety Report 7761314-0 (Version None)
Quarter: 2011Q3

REPORT INFORMATION
  Report Type: 
  Country: None (occurrence: None)
  Receive Date: 20110920
  Receipt Date: 20110916
  Transmission Date: 20111222
  Serious: No
  Sender: FDA-Public Use
  Company Number: US-PFIZER INC-2011189659

PATIENT
  Sex: Female

DRUGS (1)
  1. VERAPAMIL HCL [Suspect]
     Dosage: UNK

REACTIONS (3)
  - OEDEMA PERIPHERAL [None]
  - MALAISE [None]
  - DRUG INEFFECTIVE [None]
